FAERS Safety Report 4370620-1 (Version None)
Quarter: 2004Q2

REPORT INFORMATION
  Report Type: 
  Country: None (occurrence: None)
  Receive Date: 20040528
  Receipt Date: 20040517
  Transmission Date: 20050107
  Serious: Yes (Hospitalization, Other)
  Sender: FDA-Public Use
  Company Number: M04-341-161

PATIENT
  Age: 56 Year
  Sex: Male
  Weight: 87 kg

DRUGS (5)
  1. VELCADE [Suspect]
     Indication: MULTIPLE MYELOMA
     Dosage: INTRAVENOUS BOLUS
     Route: 040
     Dates: end: 20040506
  2. DEXAMETHASONE [Concomitant]
  3. METOPROLOL TARTRATE [Concomitant]
  4. PANTOPRAZOLE [Concomitant]
  5. WARFARIN SODIUM [Concomitant]

REACTIONS (11)
  - ATRIAL FIBRILLATION [None]
  - BRAIN NATRIURETIC PEPTIDE INCREASED [None]
  - CARDIOMEGALY [None]
  - DIZZINESS [None]
  - DYSPNOEA EXERTIONAL [None]
  - HYPERHIDROSIS [None]
  - INTERNATIONAL NORMALISED RATIO DECREASED [None]
  - NEUROPATHY PERIPHERAL [None]
  - PULMONARY CONGESTION [None]
  - THROMBOCYTOPENIA [None]
  - TREATMENT NONCOMPLIANCE [None]
